FAERS Safety Report 22061943 (Version 1)
Quarter: 2023Q1

REPORT INFORMATION
  Report Type: Spontaneous
  Country: GB (occurrence: GB)
  Receive Date: 20230304
  Receipt Date: 20230304
  Transmission Date: 20230418
  Serious: Yes (Other)
  Sender: FDA-Public Use
  Company Number: None

PATIENT
  Age: 7 Year
  Sex: Male
  Weight: 40 kg

DRUGS (1)
  1. METHYLPHENIDATE HYDROCHLORIDE [Suspect]
     Active Substance: METHYLPHENIDATE HYDROCHLORIDE
     Indication: Attention deficit hyperactivity disorder
     Dosage: ORIGINALLY 10MG AND INCREASED TO 20MG, FEW YEARS LATER IN 2022 INCREASED TO?30MG, REDUCED TO 20MG.
     Dates: start: 20170101

REACTIONS (3)
  - Selective mutism [Not Recovered/Not Resolved]
  - Tic [Recovered/Resolved with Sequelae]
  - Social anxiety disorder [Not Recovered/Not Resolved]

NARRATIVE: CASE EVENT DATE: 20180101
